FAERS Safety Report 7674024-5 (Version None)
Quarter: 2011Q3

REPORT INFORMATION
  Report Type: 
  Country: None (occurrence: None)
  Receive Date: 20110810
  Receipt Date: 20110718
  Transmission Date: 20111222
  Serious: Yes (Hospitalization)
  Sender: FDA-Public Use
  Company Number: ES-UCBSA-038438

PATIENT
  Age: 83 Year
  Sex: Male

DRUGS (10)
  1. BISOPROLOL FUMARATE [Concomitant]
  2. ALLOPURINOL [Concomitant]
  3. MANIDIPINO [Concomitant]
  4. OMEPRAZOLE [Suspect]
     Route: 048
     Dates: start: 20080101, end: 20110101
  5. CALCIUM CARBONATE [Concomitant]
  6. PREDNISONE [Concomitant]
  7. ACENOCUMAROL [Concomitant]
  8. TORSEMIDE [Concomitant]
  9. VITAMIN D [Concomitant]
  10. L-TIROXINE [Concomitant]

REACTIONS (3)
  - BLOOD CREATININE INCREASED [None]
  - HYPOCALCAEMIA [None]
  - HYPOMAGNESAEMIA [None]
